FAERS Safety Report 5669897-1 (Version None)
Quarter: 2008Q1

REPORT INFORMATION
  Report Type: 
  Country: None (occurrence: None)
  Receive Date: 20080317
  Receipt Date: 20080305
  Transmission Date: 20080703
  Serious: Yes (Disabling, Other)
  Sender: FDA-Public Use
  Company Number: GB-PFIZER INC-2008018363

PATIENT
  Sex: Male
  Weight: 75 kg

DRUGS (6)
  1. LYRICA [Suspect]
     Indication: NEUROPATHY PERIPHERAL
     Route: 048
  2. WARFARIN SODIUM [Concomitant]
     Indication: ATRIAL FIBRILLATION
     Route: 048
  3. SIMVASTATIN [Concomitant]
     Indication: MYOCARDIAL ISCHAEMIA
  4. FUROSEMIDE [Concomitant]
     Indication: MYOCARDIAL ISCHAEMIA
  5. VALSARTAN [Concomitant]
     Indication: MYOCARDIAL ISCHAEMIA
  6. DILTIAZEM [Concomitant]
     Indication: ATRIAL FIBRILLATION

REACTIONS (6)
  - ATHETOSIS [None]
  - BALANCE DISORDER [None]
  - DYSKINESIA [None]
  - SYNCOPE [None]
  - TONGUE PARALYSIS [None]
  - TREMOR [None]
